FAERS Safety Report 24107060 (Version 1)
Quarter: 2024Q3

REPORT INFORMATION
  Report Type: Spontaneous
  Country: ES (occurrence: ES)
  Receive Date: 20240718
  Receipt Date: 20240718
  Transmission Date: 20241017
  Serious: Yes (Disabling, Other)
  Sender: GLAXOSMITHKLINE
  Company Number: None

PATIENT

DRUGS (9)
  1. BUPROPION HYDROCHLORIDE [Suspect]
     Active Substance: BUPROPION HYDROCHLORIDE
     Indication: Dissociative disorder
     Dosage: 1 DF, QOD (1 TABLET PER DAY REDUCED DOSE TO 1 TABLET EVERY 2 DAYS)
     Route: 048
     Dates: start: 20240610, end: 20240616
  2. BUPROPION HYDROCHLORIDE [Suspect]
     Active Substance: BUPROPION HYDROCHLORIDE
     Indication: Depression
  3. LORAZEPAM [Concomitant]
     Active Substance: LORAZEPAM
     Indication: Dissociative disorder
     Dosage: UNK (UP TO 3 TABLETS A DAY)
     Route: 065
  4. LORAZEPAM [Concomitant]
     Active Substance: LORAZEPAM
     Indication: Panic reaction
  5. SERTRALINE HYDROCHLORIDE [Concomitant]
     Active Substance: SERTRALINE HYDROCHLORIDE
     Indication: Dissociative disorder
     Dosage: 1.5 DF, QD (1 AND A HALF TABLETS PER DAY, IN THE MORNING)
     Route: 065
     Dates: end: 20240616
  6. SERTRALINE HYDROCHLORIDE [Concomitant]
     Active Substance: SERTRALINE HYDROCHLORIDE
     Indication: Anxiety
  7. SERTRALINE HYDROCHLORIDE [Concomitant]
     Active Substance: SERTRALINE HYDROCHLORIDE
     Indication: Depression
  8. CYANOCOBALAMIN [Concomitant]
     Active Substance: CYANOCOBALAMIN
     Indication: Vegetarian
     Dosage: UNK (2-3TABLETS PER WEEK)
     Route: 065
  9. OLANZAPINE [Concomitant]
     Active Substance: OLANZAPINE
     Indication: Product used for unknown indication
     Dosage: 1 DF (1 TABLET SUPPLIED BY NURSING)
     Route: 065
     Dates: start: 20240618, end: 20240618

REACTIONS (14)
  - Dizziness [Unknown]
  - Balance disorder [Unknown]
  - Muscle rigidity [Recovering/Resolving]
  - Electric shock sensation [Not Recovered/Not Resolved]
  - Formication [Unknown]
  - Blindness [Unknown]
  - Fatigue [Unknown]
  - Sluggishness [Unknown]
  - Dizziness [Unknown]
  - Disorientation [Unknown]
  - Muscle spasms [Unknown]
  - Excessive eye blinking [Unknown]
  - Asthenia [Unknown]
  - Blepharospasm [Unknown]

NARRATIVE: CASE EVENT DATE: 20240615
